FAERS Safety Report 17862097 (Version 1)
Quarter: 2020Q2

REPORT INFORMATION
  Report Type: Spontaneous
  Country: FR (occurrence: FR)
  Receive Date: 20200604
  Receipt Date: 20200604
  Transmission Date: 20200714
  Serious: Yes (Hospitalization)
  Sender: FDA-Public Use
  Company Number: FR-MYLANLABS-2020M1053960

PATIENT
  Age: 87 Year
  Sex: Male
  Weight: 78 kg

DRUGS (16)
  1. SIMVASTATINE [Concomitant]
     Active Substance: SIMVASTATIN
     Dosage: 40 MILLIGRAM, QD
     Route: 048
     Dates: start: 20191226
  2. COLECALCIFEROL [Concomitant]
     Active Substance: CHOLECALCIFEROL
     Dosage: NON RENSEIGNEE
     Route: 048
  3. PERINDOPRIL/INDAPAMIDE ARROW [Concomitant]
     Dosage: 1 DOSAGE FORM, QD
     Route: 048
     Dates: start: 20200120
  4. ECONAZOLE. [Concomitant]
     Active Substance: ECONAZOLE NITRATE
     Dosage: 2 DOSAGE FORM, QD
     Route: 003
     Dates: start: 20200109
  5. CITALOPRAM [Concomitant]
     Active Substance: CITALOPRAM HYDROBROMIDE
     Dosage: NON RENSEIGNEE
     Route: 048
     Dates: start: 20200115
  6. CLOPIDOGREL [Suspect]
     Active Substance: CLOPIDOGREL BISULFATE
     Indication: ACUTE CORONARY SYNDROME
     Dosage: 75 MILLIGRAM, QD
     Route: 048
     Dates: start: 20191226, end: 20200217
  7. KARDEGIC [Suspect]
     Active Substance: ASPIRIN DL-LYSINE
     Indication: ACUTE CORONARY SYNDROME
     Dosage: 1 DOSAGE FORM, QD
     Route: 048
     Dates: start: 20191226
  8. ALLOPURINOL. [Concomitant]
     Active Substance: ALLOPURINOL
     Dosage: 100 MILLIGRAM, QD
     Route: 048
     Dates: start: 20191226
  9. LACTULOSE. [Concomitant]
     Active Substance: LACTULOSE
     Dosage: 10 GRAM, QD
     Route: 048
     Dates: start: 20191226
  10. BISOPROLOL FUMARATE. [Concomitant]
     Active Substance: BISOPROLOL FUMARATE
     Dosage: 5 MILLIGRAM, QD
     Route: 048
     Dates: start: 20191226
  11. SERESTA [Concomitant]
     Active Substance: OXAZEPAM
     Dosage: 1 DOSAGE FORM, QD
     Route: 048
     Dates: start: 20200120
  12. HEPARINE CALCIUM [Suspect]
     Active Substance: HEPARIN CALCIUM
     Indication: THROMBOSIS PROPHYLAXIS
     Dosage: 0.4 MILLILITER, QD
     Route: 058
     Dates: start: 20191226
  13. DOLIPRANE [Concomitant]
     Active Substance: ACETAMINOPHEN
     Dosage: 3 DOSAGE FORM, QD
     Route: 048
     Dates: start: 20191226
  14. FUROSEMIDE. [Concomitant]
     Active Substance: FUROSEMIDE
     Dosage: 40 MILLIGRAM, QD
     Route: 048
     Dates: start: 20191226
  15. PANTOPRAZOLE [Concomitant]
     Active Substance: PANTOPRAZOLE
     Dosage: 20 MILLIGRAM, QD
     Route: 048
     Dates: start: 20191226
  16. LERCANIDIPINE [Concomitant]
     Active Substance: LERCANIDIPINE
     Dosage: 10 MILLIGRAM, QD
     Route: 048
     Dates: start: 20191226

REACTIONS (1)
  - Vascular purpura [Recovering/Resolving]

NARRATIVE: CASE EVENT DATE: 20200217
